FAERS Safety Report 9472462 (Version 1)
Quarter: 2013Q3

REPORT INFORMATION
  Report Type: Spontaneous
  Country: US (occurrence: None)
  Receive Date: 20130821
  Receipt Date: 20130821
  Transmission Date: 20140515
  Serious: Yes (Disabling, Other)
  Sender: FDA-Public Use
  Company Number: None

PATIENT
  Age: 54 Year
  Sex: Female
  Weight: 65.77 kg

DRUGS (1)
  1. LEVOXYL [Suspect]
     Indication: HYPOTHYROIDISM
     Route: 048
     Dates: start: 20130101, end: 20130411

REACTIONS (7)
  - Eye disorder [None]
  - Hyperthyroidism [None]
  - Anti-thyroid antibody positive [None]
  - Overdose [None]
  - Eye swelling [None]
  - Eyelid oedema [None]
  - Product quality issue [None]
